FAERS Safety Report 15801419 (Version 5)
Quarter: 2019Q3

REPORT INFORMATION
  Report Type: Report from Study
  Country: SG (occurrence: SG)
  Receive Date: 20190109
  Receipt Date: 20190916
  Transmission Date: 20191004
  Serious: Yes (Hospitalization)
  Sender: FDA-Public Use
  Company Number: SG-ROCHE-2239306

PATIENT
  Age: 55 Year
  Sex: Male
  Weight: 66.1 kg

DRUGS (24)
  1. ATEZOLIZUMAB. [Suspect]
     Active Substance: ATEZOLIZUMAB
     Indication: HEPATOCELLULAR CARCINOMA
     Dosage: DATE OF MOST RECENT DOSE OF ATEZOLIZUMAB 1200 MG PRIOR TO SAE ONSET: 28/DEC/2018
     Route: 042
     Dates: start: 20181228
  2. FRUSEMIDE [FUROSEMIDE] [Concomitant]
     Active Substance: FUROSEMIDE
     Route: 065
     Dates: start: 20190124, end: 20190124
  3. BEVACIZUMAB. [Suspect]
     Active Substance: BEVACIZUMAB
     Indication: HEPATOCELLULAR CARCINOMA
     Dosage: DATE OF MOST RECENT DOSE OF BEVACIZUMAB 993 MG PRIOR TO SAE ONSET: 28/DEC/2018
     Route: 042
     Dates: start: 20181228
  4. TRAMADOL. [Concomitant]
     Active Substance: TRAMADOL
     Indication: PAIN
     Route: 065
     Dates: start: 20190110, end: 20190114
  5. ENTECAVIR. [Concomitant]
     Active Substance: ENTECAVIR
     Indication: CHRONIC HEPATITIS B
     Route: 065
     Dates: start: 20181031
  6. AQUEOUS [EMULSIFYING WAX;PARAFFIN, LIQUID;WHITE SOFT PARAFFIN] [Concomitant]
     Indication: RASH
     Route: 065
     Dates: start: 20190218
  7. METRONIDAZOLE. [Concomitant]
     Active Substance: METRONIDAZOLE
     Route: 065
     Dates: start: 20190114, end: 20190115
  8. SPIRONOLACTONE. [Concomitant]
     Active Substance: SPIRONOLACTONE
     Route: 065
     Dates: start: 20190114, end: 20190227
  9. SENNOSIDES. [Concomitant]
     Active Substance: SENNOSIDES
     Route: 065
     Dates: start: 20190112, end: 20190112
  10. ALBUMIN [Concomitant]
     Active Substance: ALBUMIN HUMAN
     Dosage: SOLUTION
     Route: 065
     Dates: start: 20190111, end: 20190115
  11. SPAN K [Concomitant]
  12. LACTULOSE. [Concomitant]
     Active Substance: LACTULOSE
     Indication: CONSTIPATION
     Route: 065
     Dates: start: 20181113, end: 20190307
  13. FENTANYL. [Concomitant]
     Active Substance: FENTANYL
     Indication: PAIN
     Route: 065
     Dates: start: 20190102, end: 20190112
  14. OMEPRAZOLE. [Concomitant]
     Active Substance: OMEPRAZOLE
     Route: 065
     Dates: start: 20181207, end: 20181207
  15. STOMATOLOGICALS, MOUTH PREPARATIONS [Concomitant]
     Route: 048
     Dates: start: 20190115, end: 20190220
  16. ACTRAPID [Concomitant]
     Active Substance: INSULIN HUMAN
     Route: 065
     Dates: start: 20190101, end: 20190107
  17. POTASSIUM CHLORIDE. [Concomitant]
     Active Substance: POTASSIUM CHLORIDE
     Indication: HYPOKALAEMIA
     Route: 065
     Dates: start: 20190114, end: 20190114
  18. LACTULOSE. [Concomitant]
     Active Substance: LACTULOSE
     Route: 065
     Dates: start: 20190125, end: 20190220
  19. ALBUMIN [Concomitant]
     Active Substance: ALBUMIN HUMAN
     Route: 065
     Dates: start: 20190209, end: 20190214
  20. LACTULOSE. [Concomitant]
     Active Substance: LACTULOSE
     Route: 065
     Dates: start: 20181113, end: 20190114
  21. FRUSEMIDE [FUROSEMIDE] [Concomitant]
     Active Substance: FUROSEMIDE
     Indication: PLEURAL EFFUSION
     Route: 065
     Dates: start: 20190114, end: 20190119
  22. FENTANYL. [Concomitant]
     Active Substance: FENTANYL
     Dosage: FENTANYL PATCH
     Route: 065
     Dates: start: 20190104, end: 20190306
  23. DIMETICONE [Concomitant]
     Active Substance: DIMETHICONE
     Indication: SKIN ABRASION
     Route: 065
     Dates: start: 20190124, end: 20190220
  24. CLEXANE [Concomitant]
     Active Substance: ENOXAPARIN SODIUM
     Indication: PULMONARY VENOUS THROMBOSIS
     Route: 058
     Dates: start: 20190218

REACTIONS (1)
  - Pyrexia [Recovered/Resolved]

NARRATIVE: CASE EVENT DATE: 20190101
